FAERS Safety Report 5696779-1 (Version None)
Quarter: 2008Q2

REPORT INFORMATION
  Report Type: 
  Country: None (occurrence: None)
  Receive Date: 20080401
  Receipt Date: 20080220
  Transmission Date: 20081010
  Serious: Yes (Other)
  Sender: FDA-Public Use
  Company Number: 162015USA

PATIENT
  Age: 63 Year
  Sex: Female

DRUGS (2)
  1. TAMOXIFEN CITRATE [Suspect]
     Indication: BREAST CANCER
     Dosage: 20 MG (20 MG,1 IN1 D),ORAL
     Route: 048
     Dates: start: 20070403, end: 20070830
  2. DIURETICS [Concomitant]

REACTIONS (2)
  - CEREBROVASCULAR ACCIDENT [None]
  - VISUAL DISTURBANCE [None]
